FAERS Safety Report 10170151 (Version 2)
Quarter: 2014Q2

REPORT INFORMATION
  Report Type: Spontaneous
  Country: US (occurrence: US)
  Receive Date: 20140513
  Receipt Date: 20140513
  Transmission Date: 20141212
  Serious: Yes (Other)
  Sender: FDA-Public Use
  Company Number: US-BANPHARM-20142662

PATIENT
  Age: 89 Year
  Sex: Male
  Weight: 68.04 kg

DRUGS (1)
  1. ALEVE LIQUID GELS 220 MG [Suspect]
     Indication: ARTHRITIS
     Dosage: 1 DF, PRN,
     Route: 048
     Dates: start: 20140430, end: 20140430

REACTIONS (3)
  - Choking [Recovered/Resolved]
  - Throat irritation [Recovered/Resolved]
  - Foreign body [Recovered/Resolved]
